FAERS Safety Report 18098646 (Version 2)
Quarter: 2020Q3

REPORT INFORMATION
  Report Type: Spontaneous
  Country: GB (occurrence: GB)
  Receive Date: 20200731
  Receipt Date: 20200911
  Transmission Date: 20201103
  Serious: Yes (Hospitalization)
  Sender: FDA-Public Use
  Company Number: GB-TEVA-2020-GB-1807077

PATIENT
  Age: 74 Year
  Sex: Female
  Weight: 89 kg

DRUGS (6)
  1. DOXYCYCLINE. [Suspect]
     Active Substance: DOXYCYCLINE
     Dosage: TWO NOW THEN ONE DAILY
     Dates: start: 20200629, end: 20200706
  2. QUININE [Concomitant]
     Active Substance: QUININE
     Dosage: 1 DOSAGE FORMS DAILY; AT NIGHT
     Dates: start: 20180206
  3. AMITRIPTYLINE HYDROCHLORIDE. [Concomitant]
     Active Substance: AMITRIPTYLINE HYDROCHLORIDE
     Indication: SCIATICA
     Dosage: 1 DOSAGE FORMS DAILY; AT NIGHT
     Dates: start: 20200115
  4. LORATADINE. [Concomitant]
     Active Substance: LORATADINE
     Dates: start: 20200622
  5. LOSARTAN. [Interacting]
     Active Substance: LOSARTAN
     Dates: start: 20200512
  6. FELODIPINE. [Concomitant]
     Active Substance: FELODIPINE
     Dates: start: 20200330, end: 20200512

REACTIONS (3)
  - Rash [Recovering/Resolving]
  - Swollen tongue [Recovering/Resolving]
  - Drug interaction [Unknown]

NARRATIVE: CASE EVENT DATE: 20200707
